FAERS Safety Report 19277192 (Version 4)
Quarter: 2021Q3

REPORT INFORMATION
  Report Type: Report from Study
  Country: KR (occurrence: KR)
  Receive Date: 20210520
  Receipt Date: 20210721
  Transmission Date: 20211014
  Serious: Yes (Hospitalization)
  Sender: FDA-Public Use
  Company Number: KR-CELLTRION INC.-2021KR006616

PATIENT

DRUGS (39)
  1. TRUXIMA [Suspect]
     Active Substance: RITUXIMAB-ABBS
     Dosage: 615 MG (1ST CYCLE) ? 100 MG VIAL, (HEIGHT: 166.2 CM; WEIGHT: 57.6 KG)
     Route: 042
     Dates: start: 20201204
  2. SOLONDO [Concomitant]
     Active Substance: PREDNISOLONE
     Indication: DIFFUSE LARGE B-CELL LYMPHOMA
     Dosage: 5 MG, QD
     Route: 048
     Dates: start: 20210503, end: 20210615
  3. LASIX [Concomitant]
     Active Substance: FUROSEMIDE
     Indication: PLEURAL EFFUSION
     Dosage: 20 MG, BID
     Route: 048
     Dates: start: 20210506
  4. LASIX [Concomitant]
     Active Substance: FUROSEMIDE
     Dosage: 20 MG, QD
     Route: 048
     Dates: start: 20210526
  5. NEXIUM [Concomitant]
     Active Substance: ESOMEPRAZOLE MAGNESIUM
     Indication: PROPHYLAXIS
     Dosage: 20 MG, QD
     Route: 048
     Dates: start: 20210616
  6. TRUXIMA [Suspect]
     Active Substance: RITUXIMAB-ABBS
     Dosage: 626.25 MG (2ND CYCLE) ? 100 MG VIAL, (HEIGHT: 166.1 CM; WEIGHT: 60 KG)
     Route: 042
     Dates: start: 20210104
  7. TRUXIMA [Suspect]
     Active Substance: RITUXIMAB-ABBS
     Dosage: 633.75 MG (4TH CYCLE) ? 500 MG VIAL, (HEIGHT: 166.3 CM; WEIGHT: 61.5 KG)
     Route: 042
     Dates: start: 20210308
  8. FEROBA YOU RETARD [Concomitant]
     Indication: ANAEMIA
     Dosage: 1 DOSAGE FORM, BID
     Route: 048
     Dates: start: 20200704
  9. TRUXIMA [Suspect]
     Active Substance: RITUXIMAB-ABBS
     Dosage: 626.25 MG (3RD CYCLE) ?100 MG VIAL, (HEIGHT: 166.3 CM; WEIGHT: 60.4 KG)
     Route: 042
     Dates: start: 20210208
  10. TRUXIMA [Suspect]
     Active Substance: RITUXIMAB-ABBS
     Dosage: 626.25 MG (6TH CYCLE) ? 100 MG VIAL, (HEIGHT: 165.7 CM; WEIGHT: 60.8 KG)
     Route: 042
     Dates: start: 20210520
  11. SOLONDO [Concomitant]
     Active Substance: PREDNISOLONE
     Dosage: 7.5 MG, QD
     Route: 048
     Dates: start: 20210707
  12. DICAMAX 1000 [Concomitant]
     Indication: PROPHYLAXIS
     Dosage: 1 DOSAGE FORM, QD
     Route: 048
     Dates: start: 20210503
  13. CRAVIT [Concomitant]
     Active Substance: LEVOFLOXACIN
     Indication: PLEURAL EFFUSION
     Dosage: 500 MG, QD
     Route: 042
     Dates: start: 20210503
  14. LOPERAMIDE [Concomitant]
     Active Substance: LOPERAMIDE
     Indication: DIARRHOEA
     Dosage: 4 MG, PRN
     Route: 048
     Dates: start: 20210618
  15. TRUXIMA [Suspect]
     Active Substance: RITUXIMAB-ABBS
     Indication: DIFFUSE LARGE B-CELL LYMPHOMA
     Dosage: 615 MG (1ST CYCLE) ? 500 MG VIAL, (HEIGHT: 166.2 CM; WEIGHT: 57.6 KG)
     Route: 042
     Dates: start: 20201204
  16. TRUXIMA [Suspect]
     Active Substance: RITUXIMAB-ABBS
     Dosage: 626.25 MG (2ND CYCLE) ? 500 MG VIAL, (HEIGHT: 166.1 CM; WEIGHT: 60 KG)
     Route: 042
     Dates: start: 20210104
  17. TRUXIMA [Suspect]
     Active Substance: RITUXIMAB-ABBS
     Dosage: 626.25 MG (2ND CYCLE) ? 100 MG VIAL, (HEIGHT: 166.1 CM; WEIGHT: 60 KG)
     Route: 042
     Dates: start: 20210104
  18. TRUXIMA [Suspect]
     Active Substance: RITUXIMAB-ABBS
     Dosage: 633.75 MG (4TH CYCLE) ? 100 MG VIAL, (HEIGHT: 166.3 CM; WEIGHT: 61.5 KG)
     Route: 042
     Dates: start: 20210308
  19. TRUXIMA [Suspect]
     Active Substance: RITUXIMAB-ABBS
     Dosage: 626.25 MG (5TH CYCLE) ? 100 MG VIAL, (HEIGHT: 165.7 CM; WEIGHT: 60.8 KG)
     Route: 042
     Dates: start: 20210405
  20. LIVALO [Concomitant]
     Active Substance: PITAVASTATIN CALCIUM
     Indication: PROPHYLAXIS
     Dosage: 4 MG, QD
     Route: 048
     Dates: start: 20130715
  21. DENOGAN [Concomitant]
     Active Substance: PROPACETAMOL HYDROCHLORIDE
     Dosage: 1 GRAM, QD
     Route: 042
     Dates: start: 20210611, end: 20210614
  22. TRUXIMA [Suspect]
     Active Substance: RITUXIMAB-ABBS
     Dosage: 615 MG (1ST CYCLE) ? 100 MG VIAL, (HEIGHT: 166.2 CM; WEIGHT: 57.6 KG)
     Route: 042
     Dates: start: 20201204
  23. TRUXIMA [Suspect]
     Active Substance: RITUXIMAB-ABBS
     Dosage: 626.25 MG (3RD CYCLE) ? 500 MG VIAL, (HEIGHT: 166.3 CM; WEIGHT: 60.4 KG)
     Route: 042
     Dates: start: 20210208
  24. TRUXIMA [Suspect]
     Active Substance: RITUXIMAB-ABBS
     Dosage: 626.25 MG (3RD CYCLE) ?100 MG VIAL, (HEIGHT: 166.3 CM; WEIGHT: 60.4 KG)
     Route: 042
     Dates: start: 20210208
  25. ASPIRIN PROTECT [Concomitant]
     Active Substance: ASPIRIN
     Indication: ANGINA PECTORIS
     Dosage: 100 MG, QD
     Route: 048
     Dates: start: 20100628
  26. SYNTHYROXINE [Concomitant]
     Active Substance: LEVOTHYROXINE SODIUM
     Indication: HYPOTHYROIDISM
     Dosage: 50 MICROGRAM, QD
     Route: 048
     Dates: start: 20200626
  27. MAXIPIME [Concomitant]
     Active Substance: CEFEPIME HYDROCHLORIDE
     Indication: PLEURAL EFFUSION
     Dosage: 2 GRAM, TID
     Route: 042
     Dates: start: 20210503
  28. TRUXIMA [Suspect]
     Active Substance: RITUXIMAB-ABBS
     Dosage: 633.75 MG (4TH CYCLE) ? 100 MG VIAL, (HEIGHT: 166.3 CM; WEIGHT: 61.5 KG)
     Route: 042
     Dates: start: 20210308
  29. TRUXIMA [Suspect]
     Active Substance: RITUXIMAB-ABBS
     Dosage: 626.25 MG (6TH CYCLE) ? 100 MG VIAL, (HEIGHT: 165.7 CM; WEIGHT: 60.8 KG)
     Route: 042
     Dates: start: 20210520
  30. TRUXIMA [Suspect]
     Active Substance: RITUXIMAB-ABBS
     Dosage: 626.25 MG (6TH CYCLE) ? 100 MG VIAL, (HEIGHT: 165.7 CM; WEIGHT: 60.8 KG)
     Route: 042
     Dates: start: 20210520
  31. FOLIC ACID. [Concomitant]
     Active Substance: FOLIC ACID
     Indication: ANAEMIA
     Dosage: 1 MG, BID
     Route: 048
     Dates: start: 20200723
  32. TRUXIMA [Suspect]
     Active Substance: RITUXIMAB-ABBS
     Dosage: 626.25 MG (5TH CYCLE) ? 500 MG VIAL, (HEIGHT: 165.7 CM; WEIGHT: 60.8 KG)
     Route: 042
     Dates: start: 20210405
  33. URUSA [Concomitant]
     Active Substance: URSODIOL
     Indication: PROPHYLAXIS
     Dosage: 100 MG, TID
     Route: 048
     Dates: start: 20210617
  34. TRUXIMA [Suspect]
     Active Substance: RITUXIMAB-ABBS
     Dosage: 626.25 MG (5TH CYCLE) ? 100 MG VIAL, (HEIGHT: 165.7 CM; WEIGHT: 60.8 KG)
     Route: 042
     Dates: start: 20210405
  35. VASTINAN MR [Concomitant]
     Indication: ANGINA PECTORIS
     Dosage: 35 MG, QD
     Route: 048
     Dates: start: 20171218
  36. DENOGAN [Concomitant]
     Active Substance: PROPACETAMOL HYDROCHLORIDE
     Indication: PYREXIA
     Dosage: 1 GRAM, QD
     Route: 042
     Dates: start: 20210503, end: 20210508
  37. GRASIN [Concomitant]
     Indication: NEUTROPHIL COUNT DECREASED
     Dosage: 150 MICROGRAM, QD
     Route: 058
     Dates: start: 20210610, end: 20210708
  38. LACIDOFIL [Concomitant]
     Active Substance: PROBIOTICS NOS
     Indication: DIARRHOEA
     Dosage: 20 MG, BID
     Route: 048
     Dates: start: 20210618
  39. CAVID CHEW [Concomitant]
     Indication: PROPHYLAXIS
     Dosage: 1 TAB, QD
     Route: 048
     Dates: start: 20210525

REACTIONS (5)
  - Pneumocystis jirovecii pneumonia [Recovered/Resolved]
  - Overdose [Unknown]
  - Pneumonia [Recovered/Resolved]
  - Intentional dose omission [Unknown]
  - Underdose [Unknown]

NARRATIVE: CASE EVENT DATE: 20210502
